FAERS Safety Report 25108495 (Version 1)
Quarter: 2025Q1

REPORT INFORMATION
  Report Type: Spontaneous
  Country: US (occurrence: US)
  Receive Date: 20250322
  Receipt Date: 20250322
  Transmission Date: 20250409
  Serious: No
  Sender: ABBVIE
  Company Number: US-ABBVIE-6188624

PATIENT

DRUGS (2)
  1. UPADACITINIB [Suspect]
     Active Substance: UPADACITINIB
     Indication: Dermatitis atopic
     Route: 048
  2. UPADACITINIB [Suspect]
     Active Substance: UPADACITINIB
     Indication: Dermatitis atopic
     Dosage: REDUCED DOSE
     Route: 048

REACTIONS (1)
  - White blood cell count decreased [Unknown]
